FAERS Safety Report 9872304 (Version 3)
Quarter: 2014Q2

REPORT INFORMATION
  Report Type: Spontaneous
  Country: JP (occurrence: JP)
  Receive Date: 20140205
  Receipt Date: 20140522
  Transmission Date: 20141212
  Serious: Yes (Hospitalization)
  Sender: FDA-Public Use
  Company Number: JP-JNJFOC-20140200478

PATIENT
  Age: 80 Year
  Sex: Male

DRUGS (21)
  1. LOPEMIN [Suspect]
     Route: 048
  2. LOPEMIN [Suspect]
     Indication: PRODUCT USED FOR UNKNOWN INDICATION
     Route: 048
     Dates: end: 20140117
  3. SERENACE [Suspect]
     Indication: PRODUCT USED FOR UNKNOWN INDICATION
     Route: 048
  4. SELARA (EPLERENONE) [Suspect]
     Indication: PRODUCT USED FOR UNKNOWN INDICATION
     Route: 048
  5. MAINTATE [Suspect]
     Indication: PRODUCT USED FOR UNKNOWN INDICATION
     Route: 048
  6. IRRIBOW [Suspect]
     Indication: PRODUCT USED FOR UNKNOWN INDICATION
     Route: 048
  7. FEBURIC [Suspect]
     Indication: PRODUCT USED FOR UNKNOWN INDICATION
     Route: 048
  8. UBRETID [Suspect]
     Indication: PRODUCT USED FOR UNKNOWN INDICATION
     Route: 048
  9. AIMIX [Suspect]
     Indication: PRODUCT USED FOR UNKNOWN INDICATION
     Route: 048
  10. NEXIUM [Suspect]
     Indication: PRODUCT USED FOR UNKNOWN INDICATION
     Route: 048
  11. GASLON N [Concomitant]
     Route: 048
  12. MACTASE [Concomitant]
     Route: 048
  13. PURSENNID [Concomitant]
     Route: 048
  14. FEXOFENADINE HYDROCHLORIDE [Concomitant]
     Route: 048
  15. CERNILTON [Concomitant]
     Route: 048
  16. HYDROCHLOROTHIAZIDE [Concomitant]
     Route: 048
  17. CHLORDIAZEPOXIDE [Concomitant]
     Route: 048
  18. NEULEPTIL [Concomitant]
     Route: 048
  19. PYRETHIA [Concomitant]
     Route: 048
  20. TATHION [Concomitant]
     Route: 048
  21. URIEF [Concomitant]
     Route: 048

REACTIONS (2)
  - Rhabdomyolysis [Recovered/Resolved]
  - Haemodialysis [Unknown]
